APPROVED DRUG PRODUCT: ACETIC ACID
Active Ingredient: ACETIC ACID, GLACIAL
Strength: 2%
Dosage Form/Route: SOLUTION/DROPS;OTIC
Application: A088638 | Product #001
Applicant: SUN PHARMA CANADA INC
Approved: Sep 6, 1984 | RLD: No | RS: No | Type: DISCN